FAERS Safety Report 8560990-2 (Version None)
Quarter: 2012Q3

REPORT INFORMATION
  Report Type: 
  Country: None (occurrence: None)
  Receive Date: 20120802
  Receipt Date: 19860407
  Transmission Date: 20120928
  Serious: Yes (Death, Hospitalization, Other)
  Sender: FDA-Public Use
  Company Number: US-009507513-86040306

PATIENT

DRUGS (5)
  1. TRIAMTERENE [Concomitant]
  2. MK-0152 [Concomitant]
     Indication: HYPERTENSION
  3. DIAGNOSTIC RADIOPHARMACEUTICAL (UNSPECIFIED) [Concomitant]
  4. INSULIN [Concomitant]
  5. DECADRON PHOSPHATE [Suspect]
     Dosage: 16 MG, UNK
     Route: 048

REACTIONS (14)
  - DECREASED APPETITE [None]
  - GENERAL SYMPTOM [None]
  - DIABETES MELLITUS [None]
  - PYREXIA [None]
  - STRONGYLOIDIASIS [None]
  - GASTROINTESTINAL HAEMORRHAGE [None]
  - ILEUS PARALYTIC [None]
  - ACUTE RESPIRATORY DISTRESS SYNDROME [None]
  - SYNCOPE [None]
  - PROSTATE CANCER [None]
  - ABDOMINAL DISTENSION [None]
  - NEOPLASM MALIGNANT [None]
  - ABDOMINAL PAIN [None]
  - CONSTIPATION [None]
